FAERS Safety Report 4961278-9 (Version None)
Quarter: 2006Q1

REPORT INFORMATION
  Report Type: 
  Country: None (occurrence: None)
  Receive Date: 20060328
  Receipt Date: 20060317
  Transmission Date: 20060701
  Serious: Yes (Other)
  Sender: FDA-Public Use
  Company Number: 223195

PATIENT
  Age: 55 Year
  Sex: Female

DRUGS (1)
  1. MABTHERA                       (RITUXIMAB) [Suspect]
     Dosage: INTRAVENOUS
     Route: 042

REACTIONS (3)
  - ALANINE AMINOTRANSFERASE INCREASED [None]
  - HEADACHE [None]
  - SERUM SICKNESS [None]
